FAERS Safety Report 4372362-5 (Version None)
Quarter: 2004Q2

REPORT INFORMATION
  Report Type: 
  Country: None (occurrence: None)
  Receive Date: 20040602
  Receipt Date: 20040324
  Transmission Date: 20050107
  Serious: Yes (Hospitalization)
  Sender: FDA-Public Use
  Company Number: 2004204331JP

PATIENT
  Age: 72 Year
  Sex: Male
  Weight: 46 kg

DRUGS (7)
  1. CAMPTOSAR [Suspect]
     Indication: SMALL CELL LUNG CANCER STAGE UNSPECIFIED
     Dosage: 80 MG, IV DRIP
     Route: 041
     Dates: start: 20040225, end: 20040225
  2. CISPLATIN [Suspect]
     Indication: SMALL CELL LUNG CANCER STAGE UNSPECIFIED
     Dosage: 80 MG, IV DRIP
     Route: 041
     Dates: start: 20040225, end: 20040225
  3. KYTRIL [Suspect]
     Dosage: 3 MG, IV DRIP
     Route: 041
     Dates: start: 20040225, end: 20040226
  4. TENORMIN [Suspect]
     Dosage: 25 MG, ORAL
     Route: 048
     Dates: start: 20040206
  5. NORVASC [Suspect]
     Dosage: 5 MG, ORAL
     Route: 048
     Dates: start: 20040206
  6. BLOPRESS (CANDESARTAN CILEXETIL) [Suspect]
     Dosage: 8 MG, ORAL
     Route: 048
     Dates: start: 20040206
  7. DECADRON [Concomitant]

REACTIONS (9)
  - ABNORMAL BEHAVIOUR [None]
  - AMNESIA [None]
  - BLOOD PRESSURE SYSTOLIC INCREASED [None]
  - BODY TEMPERATURE INCREASED [None]
  - DELIRIUM [None]
  - DEPRESSED LEVEL OF CONSCIOUSNESS [None]
  - RESTLESSNESS [None]
  - TREMOR [None]
  - URINARY INCONTINENCE [None]
